FAERS Safety Report 6911782-9 (Version None)
Quarter: 2010Q3

REPORT INFORMATION
  Report Type: 
  Country: None (occurrence: None)
  Receive Date: 20100806
  Receipt Date: 20070820
  Transmission Date: 20110219
  Serious: No
  Sender: FDA-Public Use
  Company Number: US-PFIZER INC-2007069682

PATIENT
  Sex: Female
  Weight: 53.52 kg

DRUGS (5)
  1. DETROL LA [Suspect]
     Indication: HYPERTONIC BLADDER
     Dates: start: 20070101
  2. COZAAR [Concomitant]
     Indication: HYPERTENSION
  3. TOPROL-XL [Concomitant]
     Indication: HYPERTENSION
  4. DYAZIDE [Concomitant]
     Indication: HYPERTENSION
  5. LUMIGAN [Concomitant]
     Indication: OPEN ANGLE GLAUCOMA

REACTIONS (1)
  - DRY MOUTH [None]
